FAERS Safety Report 19209207 (Version 3)
Quarter: 2021Q2

REPORT INFORMATION
  Report Type: Spontaneous
  Country: US (occurrence: US)
  Receive Date: 20210503
  Receipt Date: 20210507
  Transmission Date: 20210717
  Serious: Yes (Hospitalization)
  Sender: FDA-Public Use
  Company Number: US-ASTRAZENECA-2021A360311

PATIENT
  Age: 26694 Day
  Sex: Male
  Weight: 128.4 kg

DRUGS (15)
  1. BYDUREON BCISE [Suspect]
     Active Substance: EXENATIDE
     Indication: TYPE 2 DIABETES MELLITUS
     Route: 058
  2. GLYBURIDE. [Concomitant]
     Active Substance: GLYBURIDE
     Indication: BLOOD GLUCOSE DECREASED
     Route: 048
     Dates: start: 202005
  3. INSULIN [Concomitant]
     Active Substance: INSULIN NOS
     Indication: DIABETES MELLITUS
  4. DOXAZOSIN [Concomitant]
     Active Substance: DOXAZOSIN MESYLATE
     Indication: PROSTATE CANCER
     Route: 048
  5. METFORMIN [Concomitant]
     Active Substance: METFORMIN HYDROCHLORIDE
     Indication: BLOOD GLUCOSE DECREASED
     Route: 048
     Dates: start: 202102
  6. ISOSORBIDE. [Concomitant]
     Active Substance: ISOSORBIDE
     Route: 048
     Dates: start: 202005
  7. WARFARIN [Concomitant]
     Active Substance: WARFARIN
     Indication: ILL-DEFINED DISORDER
     Route: 048
     Dates: start: 202005
  8. BYDUREON [Suspect]
     Active Substance: EXENATIDE
     Indication: TYPE 2 DIABETES MELLITUS
     Route: 058
     Dates: end: 202104
  9. METOPROLOL. [Concomitant]
     Active Substance: METOPROLOL
     Indication: BLOOD PRESSURE MEASUREMENT
     Route: 048
     Dates: start: 202005
  10. VITAMIN B12 [Concomitant]
     Active Substance: CYANOCOBALAMIN
     Indication: VITAMIN B12 DEFICIENCY
     Route: 048
     Dates: start: 202102
  11. BENAZEPRIL [Concomitant]
     Active Substance: BENAZEPRIL HYDROCHLORIDE
     Indication: BLOOD PRESSURE MEASUREMENT
     Route: 048
     Dates: start: 202005
  12. TORSEMIDE. [Concomitant]
     Active Substance: TORSEMIDE
     Indication: ILL-DEFINED DISORDER
     Route: 048
     Dates: start: 202005
  13. METFORMIN [Concomitant]
     Active Substance: METFORMIN HYDROCHLORIDE
     Indication: BLOOD GLUCOSE DECREASED
     Route: 048
     Dates: start: 202008, end: 202102
  14. WARFARIN [Concomitant]
     Active Substance: WARFARIN
     Indication: ILL-DEFINED DISORDER
     Route: 048
     Dates: start: 202005
  15. POTASSIUM CHLORIDE. [Concomitant]
     Active Substance: POTASSIUM CHLORIDE
     Route: 048
     Dates: start: 202005

REACTIONS (7)
  - Intentional device use issue [Unknown]
  - Device leakage [Unknown]
  - Blood glucose increased [Not Recovered/Not Resolved]
  - Vitamin B12 decreased [Unknown]
  - Needle issue [Unknown]
  - Incorrect dose administered by device [Unknown]
  - Fluid retention [Unknown]

NARRATIVE: CASE EVENT DATE: 202005
